FAERS Safety Report 16649317 (Version 1)
Quarter: 2019Q3

REPORT INFORMATION
  Report Type: Spontaneous
  Country: JP (occurrence: JP)
  Receive Date: 20190730
  Receipt Date: 20190730
  Transmission Date: 20191004
  Serious: Yes (Other)
  Sender: FDA-Public Use
  Company Number: JP-PFIZER INC-2019217554

PATIENT
  Age: 31 Year
  Sex: Female

DRUGS (11)
  1. SOLU-CORTEF [Suspect]
     Active Substance: HYDROCORTISONE SODIUM SUCCINATE
     Indication: LARYNGEAL OEDEMA
  2. SOLU-CORTEF [Suspect]
     Active Substance: HYDROCORTISONE SODIUM SUCCINATE
     Indication: NASAL DISORDER
  3. ROCEPHIN [Suspect]
     Active Substance: CEFTRIAXONE SODIUM
     Indication: PHARYNGITIS
  4. NORMAL SALINE [Concomitant]
     Active Substance: SODIUM CHLORIDE
     Dosage: 100 ML, UNK
  5. ROCEPHIN [Suspect]
     Active Substance: CEFTRIAXONE SODIUM
     Indication: OROPHARYNGEAL PAIN
     Dosage: 2 G, DAILY
     Route: 041
     Dates: start: 20190520, end: 20190520
  6. SOLU-CORTEF [Suspect]
     Active Substance: HYDROCORTISONE SODIUM SUCCINATE
     Indication: NASAL DISCOMFORT
  7. SOLU-CORTEF [Suspect]
     Active Substance: HYDROCORTISONE SODIUM SUCCINATE
     Indication: PHARYNGITIS
  8. ROCEPHIN [Suspect]
     Active Substance: CEFTRIAXONE SODIUM
     Indication: NASAL DISCOMFORT
  9. SOLU-CORTEF [Suspect]
     Active Substance: HYDROCORTISONE SODIUM SUCCINATE
     Indication: OROPHARYNGEAL PAIN
     Dosage: 500 MG, DAILY
     Route: 041
     Dates: start: 20190520, end: 20190520
  10. ROCEPHIN [Suspect]
     Active Substance: CEFTRIAXONE SODIUM
     Indication: LARYNGEAL OEDEMA
  11. ROCEPHIN [Suspect]
     Active Substance: CEFTRIAXONE SODIUM
     Indication: NASAL DISORDER

REACTIONS (7)
  - Generalised erythema [Recovered/Resolved]
  - Product use in unapproved indication [Unknown]
  - Off label use [Unknown]
  - Drug hypersensitivity [Recovering/Resolving]
  - Rhinitis allergic [Recovered/Resolved]
  - Bronchitis [Recovered/Resolved]
  - Pruritus generalised [Recovered/Resolved]

NARRATIVE: CASE EVENT DATE: 20190520
